FAERS Safety Report 9517903 (Version 1)
Quarter: 2013Q1

REPORT INFORMATION
  Report Type: Spontaneous
  Country: US (occurrence: None)
  Receive Date: 20130305
  Receipt Date: 20130305
  Transmission Date: 20140127
  Serious: Yes (Other)
  Sender: FDA-Public Use
  Company Number: 163-21880-12022032

PATIENT
  Age: 61 Year
  Sex: Female
  Weight: 65.77 kg

DRUGS (9)
  1. REVLIMID (LENALIDOMIDE) (25 MILLIGRAM, CAPSULES) [Suspect]
     Indication: PLASMA CELL MYELOMA
     Dosage: DAILY X 14 DAYS ON, 7 DAYS OFF
     Route: 048
     Dates: start: 20120202
  2. HYDROCODONE/APAP (VICODIN) [Concomitant]
  3. LISINOPRIL (LISINOPRIL) [Concomitant]
  4. PROPRANOLOL (PROPRANOLOL) [Concomitant]
  5. CLONIDINE (CLONIDINE) [Concomitant]
  6. AMOXICILLIN (AMOXICILLIN) [Concomitant]
  7. ASPIRIN (ACETYLSALICYLIC ACID) [Concomitant]
  8. OMEPRAZOLE (OMEPRAZOLE) [Concomitant]
  9. STOOL SOFTENER (DOCUSATE SODIUM) [Concomitant]

REACTIONS (8)
  - Herpes zoster [None]
  - Tinnitus [None]
  - Paraesthesia [None]
  - Paraesthesia oral [None]
  - Pain [None]
  - Decreased appetite [None]
  - Constipation [None]
  - Sinusitis [None]
